FAERS Safety Report 18936775 (Version 1)
Quarter: 2021Q1

REPORT INFORMATION
  Report Type: Spontaneous
  Country: US (occurrence: US)
  Receive Date: 20210224
  Receipt Date: 20210224
  Transmission Date: 20210420
  Serious: No
  Sender: FDA-Public Use
  Company Number: US-TEVA-2021-US-1881753

PATIENT
  Age: 77 Year
  Sex: Male

DRUGS (3)
  1. ASPIRIN DIPYRIDAMOLE [Concomitant]
     Dosage: EVERY NIGHT AT BEDTIME
  2. PRAVASTATIN SODIUM. [Suspect]
     Active Substance: PRAVASTATIN SODIUM
     Route: 065
     Dates: start: 20210201
  3. TYLENOL [Concomitant]
     Active Substance: ACETAMINOPHEN

REACTIONS (2)
  - Vision blurred [Unknown]
  - Nightmare [Unknown]

NARRATIVE: CASE EVENT DATE: 20210201
